FAERS Safety Report 24105722 (Version 2)
Quarter: 2024Q3

REPORT INFORMATION
  Report Type: Spontaneous
  Country: CN (occurrence: CN)
  Receive Date: 20240717
  Receipt Date: 20240725
  Transmission Date: 20241017
  Serious: Yes (Other)
  Sender: PFIZER
  Company Number: CN-PFIZER INC-PV202400092469

PATIENT
  Age: 64 Year
  Sex: Male
  Weight: 70 kg

DRUGS (69)
  1. METHYLPREDNISOLONE SODIUM SUCCINATE [Interacting]
     Active Substance: METHYLPREDNISOLONE SODIUM SUCCINATE
     Indication: Non-Hodgkin^s lymphoma
     Dosage: 80 MG
     Route: 042
     Dates: start: 20220612, end: 20220617
  2. METHYLPREDNISOLONE SODIUM SUCCINATE [Interacting]
     Active Substance: METHYLPREDNISOLONE SODIUM SUCCINATE
     Indication: Haemophagocytic lymphohistiocytosis
     Dosage: 60 MG
     Route: 042
     Dates: start: 20220618, end: 20220619
  3. METHYLPREDNISOLONE SODIUM SUCCINATE [Interacting]
     Active Substance: METHYLPREDNISOLONE SODIUM SUCCINATE
     Dosage: 40 MG
     Route: 042
     Dates: start: 20220620, end: 20220622
  4. METHYLPREDNISOLONE SODIUM SUCCINATE [Interacting]
     Active Substance: METHYLPREDNISOLONE SODIUM SUCCINATE
     Dosage: 20 MG
     Route: 042
     Dates: start: 20220623, end: 20220627
  5. METHYLPREDNISOLONE SODIUM SUCCINATE [Interacting]
     Active Substance: METHYLPREDNISOLONE SODIUM SUCCINATE
     Dosage: 10 MG
     Route: 042
     Dates: start: 20220628, end: 20220629
  6. METHYLPREDNISOLONE SODIUM SUCCINATE [Interacting]
     Active Substance: METHYLPREDNISOLONE SODIUM SUCCINATE
     Dosage: 80 MG
     Route: 042
     Dates: start: 20220630, end: 20220630
  7. METHYLPREDNISOLONE SODIUM SUCCINATE [Interacting]
     Active Substance: METHYLPREDNISOLONE SODIUM SUCCINATE
     Dosage: 10 MG
     Route: 042
     Dates: start: 20220705, end: 20220711
  8. METHYLPREDNISOLONE SODIUM SUCCINATE [Interacting]
     Active Substance: METHYLPREDNISOLONE SODIUM SUCCINATE
     Dosage: 10 MG
     Route: 042
     Dates: start: 20220712, end: 20220720
  9. VORICONAZOLE [Interacting]
     Active Substance: VORICONAZOLE
     Indication: Bronchopulmonary aspergillosis
     Dosage: 400 MG, TWICE ON THE FIRST DAY
     Route: 042
     Dates: start: 20220607, end: 20220607
  10. VORICONAZOLE [Interacting]
     Active Substance: VORICONAZOLE
     Dosage: MAINTENANCE DOSE OF 200 MG Q12 H
     Route: 042
  11. VORICONAZOLE [Interacting]
     Active Substance: VORICONAZOLE
     Dosage: 400 MG Q12 H, DOUBLE MAINTENANCE DOSE
     Route: 042
     Dates: start: 20220705
  12. VORICONAZOLE [Interacting]
     Active Substance: VORICONAZOLE
     Dosage: 300 MG Q12 H
     Route: 042
  13. VORICONAZOLE [Interacting]
     Active Substance: VORICONAZOLE
     Dosage: 200 MG, 2X/DAY, REDUCED
     Route: 042
     Dates: start: 20220617, end: 20220704
  14. VORICONAZOLE [Interacting]
     Active Substance: VORICONAZOLE
     Dosage: 400 MG Q12 H
     Route: 042
     Dates: start: 20220705, end: 20220711
  15. VORICONAZOLE [Interacting]
     Active Substance: VORICONAZOLE
     Dosage: 300 MG Q12 H, ADJUSTED
     Dates: start: 20220712, end: 20220731
  16. VORICONAZOLE [Interacting]
     Active Substance: VORICONAZOLE
     Dosage: 200 MG Q12 H
     Route: 042
     Dates: start: 20220801, end: 20220804
  17. VORICONAZOLE [Interacting]
     Active Substance: VORICONAZOLE
     Dosage: 400 MG Q12 H
     Route: 042
     Dates: start: 20220805, end: 20220811
  18. VORICONAZOLE [Interacting]
     Active Substance: VORICONAZOLE
     Dosage: 300 MG Q12 H
     Dates: start: 20220812, end: 20220818
  19. DEXAMETHASONE [Interacting]
     Active Substance: DEXAMETHASONE
     Indication: Non-Hodgkin^s lymphoma
     Dosage: 20 MG
     Route: 042
     Dates: start: 20220526, end: 20220601
  20. DEXAMETHASONE [Interacting]
     Active Substance: DEXAMETHASONE
     Indication: Haemophagocytic lymphohistiocytosis
     Dosage: 10 MG
     Route: 042
     Dates: start: 20220602, end: 20220603
  21. DEXAMETHASONE [Interacting]
     Active Substance: DEXAMETHASONE
     Dosage: 5 MG
     Route: 042
     Dates: start: 20220604, end: 20220607
  22. DEXAMETHASONE [Interacting]
     Active Substance: DEXAMETHASONE
     Dosage: 2.5 MG
     Route: 042
     Dates: start: 20220608, end: 20220611
  23. DEXAMETHASONE [Interacting]
     Active Substance: DEXAMETHASONE
     Dosage: 20 MG
     Route: 042
     Dates: start: 20220701, end: 20220704
  24. DEXAMETHASONE [Interacting]
     Active Substance: DEXAMETHASONE
     Dosage: 2.5 MG
     Route: 042
     Dates: start: 20220721, end: 20220731
  25. DEXAMETHASONE [Interacting]
     Active Substance: DEXAMETHASONE
     Dosage: 12.5 MG
     Route: 042
     Dates: start: 20220801, end: 20220804
  26. DEXAMETHASONE [Interacting]
     Active Substance: DEXAMETHASONE
     Dosage: 2.5 MG
     Route: 042
     Dates: start: 20220805, end: 20220818
  27. ETOPOSIDE [Concomitant]
     Active Substance: ETOPOSIDE
     Indication: Non-Hodgkin^s lymphoma
     Dosage: 0.15 G
     Route: 042
     Dates: start: 20220526, end: 20220601
  28. ETOPOSIDE [Concomitant]
     Active Substance: ETOPOSIDE
     Indication: Haemophagocytic lymphohistiocytosis
     Dosage: 0.5 MG
     Route: 042
     Dates: start: 20220701, end: 20220704
  29. ETOPOSIDE [Concomitant]
     Active Substance: ETOPOSIDE
     Dosage: 0.5 MG
     Route: 042
     Dates: start: 20220801, end: 20220804
  30. ZANUBRUTINIB [Concomitant]
     Active Substance: ZANUBRUTINIB
     Indication: Non-Hodgkin^s lymphoma
     Dosage: 80 MG, 2X/DAY
     Route: 048
     Dates: start: 20220613
  31. ZANUBRUTINIB [Concomitant]
     Active Substance: ZANUBRUTINIB
     Indication: Haemophagocytic lymphohistiocytosis
  32. OBINUTUZUMAB [Concomitant]
     Active Substance: OBINUTUZUMAB
     Indication: Non-Hodgkin^s lymphoma
     Dosage: 1000 MG
     Route: 042
     Dates: start: 20220616
  33. OBINUTUZUMAB [Concomitant]
     Active Substance: OBINUTUZUMAB
     Indication: Haemophagocytic lymphohistiocytosis
  34. HUMAN IMMUNOGLOBULIN G [Concomitant]
     Active Substance: HUMAN IMMUNOGLOBULIN G
     Indication: Non-Hodgkin^s lymphoma
     Dosage: 20 G
     Route: 042
     Dates: start: 20220604, end: 20220615
  35. HUMAN IMMUNOGLOBULIN G [Concomitant]
     Active Substance: HUMAN IMMUNOGLOBULIN G
     Indication: Haemophagocytic lymphohistiocytosis
     Dosage: 10 G, REDUCED
     Route: 042
     Dates: start: 20220616, end: 20220622
  36. HUMAN IMMUNOGLOBULIN G [Concomitant]
     Active Substance: HUMAN IMMUNOGLOBULIN G
     Dosage: 5 G, REDUCED
     Route: 042
     Dates: start: 20220622, end: 20220630
  37. HUMAN IMMUNOGLOBULIN G [Concomitant]
     Active Substance: HUMAN IMMUNOGLOBULIN G
     Dosage: 20 G
     Route: 042
     Dates: start: 20220701, end: 20220704
  38. HUMAN IMMUNOGLOBULIN G [Concomitant]
     Active Substance: HUMAN IMMUNOGLOBULIN G
     Dosage: 10 G, REDUCED
     Route: 042
     Dates: start: 20220705, end: 20220712
  39. HUMAN IMMUNOGLOBULIN G [Concomitant]
     Active Substance: HUMAN IMMUNOGLOBULIN G
     Dosage: 5 G, REDUCED
     Route: 042
     Dates: start: 20220713, end: 20220726
  40. HUMAN IMMUNOGLOBULIN G [Concomitant]
     Active Substance: HUMAN IMMUNOGLOBULIN G
     Dosage: 10 G
     Route: 042
     Dates: start: 20220808, end: 20220815
  41. HUMAN IMMUNOGLOBULIN G [Concomitant]
     Active Substance: HUMAN IMMUNOGLOBULIN G
     Dosage: 5 G, REDUCED
     Route: 042
     Dates: start: 20220816
  42. PIPERACILLIN SODIUM\TAZOBACTAM SODIUM [Concomitant]
     Active Substance: PIPERACILLIN SODIUM\TAZOBACTAM SODIUM
     Indication: Aspergillus infection
     Dosage: 4.5 G Q8 H
     Route: 042
     Dates: start: 20220526, end: 20220601
  43. PIPERACILLIN SODIUM\TAZOBACTAM SODIUM [Concomitant]
     Active Substance: PIPERACILLIN SODIUM\TAZOBACTAM SODIUM
     Dosage: 4.5 G Q8 H
     Route: 042
     Dates: start: 20220628, end: 20220714
  44. POLYMYXIN B [Concomitant]
     Active Substance: POLYMYXIN B
     Indication: Aspergillus infection
     Dosage: 1.5 MU Q12 H
     Route: 042
     Dates: start: 20220601
  45. POLYMYXIN B [Concomitant]
     Active Substance: POLYMYXIN B
     Dosage: 1MU Q12 H
     Route: 042
  46. POLYMYXIN B [Concomitant]
     Active Substance: POLYMYXIN B
     Dosage: 0.5 MU Q12 H, ADJUSTED
     Route: 042
     Dates: start: 20220607
  47. POLYMYXIN B [Concomitant]
     Active Substance: POLYMYXIN B
     Dosage: 0.25 MU Q12 H
     Route: 045
     Dates: start: 20220601
  48. FOSFOMYCIN [Concomitant]
     Active Substance: FOSFOMYCIN
     Indication: Aspergillus infection
     Dosage: 4 G Q8 H
     Route: 042
     Dates: start: 20220601, end: 20220605
  49. FOSFOMYCIN [Concomitant]
     Active Substance: FOSFOMYCIN
     Indication: Evidence based treatment
  50. FOSFOMYCIN [Concomitant]
     Active Substance: FOSFOMYCIN
     Indication: Antibiotic therapy
  51. MINOCYCLINE [Concomitant]
     Active Substance: MINOCYCLINE HYDROCHLORIDE
     Indication: Aspergillus infection
     Dosage: 100 MG BID
     Route: 048
     Dates: start: 20220602, end: 20220702
  52. MINOCYCLINE [Concomitant]
     Active Substance: MINOCYCLINE HYDROCHLORIDE
     Indication: Evidence based treatment
  53. MINOCYCLINE [Concomitant]
     Active Substance: MINOCYCLINE HYDROCHLORIDE
     Indication: Antibiotic therapy
  54. AVIBACTAM SODIUM\CEFTAZIDIME [Concomitant]
     Active Substance: AVIBACTAM SODIUM\CEFTAZIDIME
     Indication: Aspergillus infection
     Dosage: 1.25 G Q8 H
     Route: 042
     Dates: start: 20220612, end: 20220625
  55. AVIBACTAM SODIUM\CEFTAZIDIME [Concomitant]
     Active Substance: AVIBACTAM SODIUM\CEFTAZIDIME
     Dosage: 2.5 G Q8 H
     Route: 042
     Dates: start: 20220716
  56. CASPOFUNGIN [Concomitant]
     Active Substance: CASPOFUNGIN
     Dosage: 50 MG, DAILY
     Route: 042
     Dates: start: 20220607, end: 20220609
  57. CASPOFUNGIN [Concomitant]
     Active Substance: CASPOFUNGIN
     Dosage: 70 MG, 1X/DAY
     Route: 042
     Dates: start: 20220629
  58. CASPOFUNGIN [Concomitant]
     Active Substance: CASPOFUNGIN
     Dosage: 50 MG, 1X/DAY
     Route: 042
     Dates: end: 20220724
  59. VANCOMYCIN [Concomitant]
     Active Substance: VANCOMYCIN
     Indication: Aspergillus infection
     Dosage: 500 MG, DAILY
     Route: 042
     Dates: start: 20220607, end: 20220625
  60. FLUCONAZOLE [Concomitant]
     Active Substance: FLUCONAZOLE
     Indication: Aspergillus infection
     Dosage: 400 MG, ONCE
     Route: 042
     Dates: start: 20220601
  61. FLUCONAZOLE [Concomitant]
     Active Substance: FLUCONAZOLE
     Dosage: 200 MG Q12 H
     Route: 042
     Dates: start: 20220601, end: 20220604
  62. DOXORUBICIN [Concomitant]
     Active Substance: DOXORUBICIN
     Indication: Non-Hodgkin^s lymphoma
     Dosage: 18 MG
     Route: 042
     Dates: start: 20220701, end: 20220704
  63. DOXORUBICIN [Concomitant]
     Active Substance: DOXORUBICIN
     Dosage: 18 MG
     Route: 042
     Dates: start: 20220801, end: 20220804
  64. GANCICLOVIR [Concomitant]
     Active Substance: GANCICLOVIR
     Dosage: 0.125 G QD
     Route: 042
     Dates: start: 20220608
  65. AMIKACIN [Concomitant]
     Active Substance: AMIKACIN
     Dosage: 200 MG Q12 H (INHALE)
     Route: 045
     Dates: start: 20220711, end: 20220717
  66. AMPHOTERICIN B [Concomitant]
     Active Substance: AMPHOTERICIN B
     Indication: Aspergillus infection
     Dosage: 5 MG, 2X/DAY (INHALE)
     Route: 045
     Dates: start: 20220705, end: 20220815
  67. AMPHOTERICIN B CHOLESTERYL SULFATE [Concomitant]
     Active Substance: AMPHOTERICIN B CHOLESTERYL SULFATE
     Indication: Aspergillus infection
     Dosage: 200 MG
     Route: 042
     Dates: start: 20220721
  68. VINCRISTINE [Concomitant]
     Active Substance: VINCRISTINE
     Indication: Non-Hodgkin^s lymphoma
     Dosage: 0.5 MG
     Route: 042
     Dates: start: 20220701, end: 20220704
  69. VINCRISTINE [Concomitant]
     Active Substance: VINCRISTINE
     Dosage: 0.5 MG
     Route: 042
     Dates: start: 20220801, end: 20220804

REACTIONS (3)
  - Inhibitory drug interaction [Recovered/Resolved]
  - Drug level decreased [Recovered/Resolved]
  - Drug ineffective [Recovered/Resolved]

NARRATIVE: CASE EVENT DATE: 20220601
